FAERS Safety Report 16850091 (Version 2)
Quarter: 2019Q4

REPORT INFORMATION
  Report Type: Spontaneous
  Country: AT (occurrence: AT)
  Receive Date: 20190925
  Receipt Date: 20191010
  Transmission Date: 20200122
  Serious: Yes (Other)
  Sender: FDA-Public Use
  Company Number: AT-AMGEN-AUTSP2019154488

PATIENT
  Sex: Male

DRUGS (6)
  1. FOLINIC ACID [CALCIUM FOLINATE] [Suspect]
     Active Substance: LEUCOVORIN CALCIUM
     Indication: RECTAL CANCER
     Dosage: UNK
     Route: 065
  2. BIOCEF [CEFPODOXIME PROXETIL] [Suspect]
     Active Substance: CEFPODOXIME PROXETIL
     Indication: RECTAL CANCER
     Dosage: UNK
     Route: 065
  3. IRINOTECAN [Suspect]
     Active Substance: IRINOTECAN
     Indication: RECTAL CANCER
     Dosage: UNK
     Route: 065
  4. VECTIBIX [Suspect]
     Active Substance: PANITUMUMAB
     Dosage: UNK
     Route: 042
     Dates: end: 20191001
  5. VECTIBIX [Suspect]
     Active Substance: PANITUMUMAB
     Indication: RECTAL CANCER
     Dosage: 6 MILLIGRAM/KILOGRAM
     Route: 065
     Dates: start: 20190327, end: 20190605
  6. OXALIPLATIN. [Suspect]
     Active Substance: OXALIPLATIN
     Indication: RECTAL CANCER
     Dosage: UNK
     Route: 065

REACTIONS (7)
  - Lymphadenopathy [Unknown]
  - Skin reaction [Unknown]
  - Metastases to liver [Unknown]
  - Cholestasis [Unknown]
  - Intestinal metastasis [Unknown]
  - Hydronephrosis [Unknown]
  - Pleural effusion [Unknown]

NARRATIVE: CASE EVENT DATE: 20190831
